FAERS Safety Report 9470072 (Version 1)
Quarter: 2013Q3

REPORT INFORMATION
  Report Type: Spontaneous
  Country: US (occurrence: US)
  Receive Date: 20130822
  Receipt Date: 20130822
  Transmission Date: 20140515
  Serious: Yes (Other)
  Sender: FDA-Public Use
  Company Number: US-COVIDIEN/TYCO HEALTHCARE/MALLINCKRODT-T201304145

PATIENT
  Sex: Male
  Weight: 48.98 kg

DRUGS (5)
  1. OXYCODONE [Suspect]
     Indication: PAIN
     Dosage: 30 MG, 2 TABS Q 4 HRS PRN
     Route: 048
     Dates: start: 2009
  2. PREDNISONE [Concomitant]
     Dosage: UNK
  3. TAGAMET                            /00397401/ [Concomitant]
     Indication: DYSPEPSIA
     Dosage: UNK
  4. ANTIHYPERTENSIVES [Concomitant]
     Indication: BLOOD PRESSURE
     Dosage: UNK
  5. SALT PILL [Concomitant]
     Dosage: UNK

REACTIONS (4)
  - Weight decreased [Unknown]
  - Abdominal distension [Not Recovered/Not Resolved]
  - Body height decreased [Unknown]
  - Dyspepsia [Not Recovered/Not Resolved]
